FAERS Safety Report 8300378-2 (Version None)
Quarter: 2012Q2

REPORT INFORMATION
  Report Type: 
  Country: None (occurrence: None)
  Receive Date: 20120418
  Receipt Date: 20120404
  Transmission Date: 20120825
  Serious: Yes (Death, Hospitalization, Other)
  Sender: FDA-Public Use
  Company Number: 2008AL012001

PATIENT
  Age: 66 Year
  Sex: Male
  Weight: 83.9154 kg

DRUGS (77)
  1. CARDIZEM [Concomitant]
  2. LOPRESSOR [Concomitant]
  3. DOK [Concomitant]
  4. SULFADIAZINE [Concomitant]
  5. OXYBUTYNIN [Concomitant]
  6. VENLAFAXINE [Concomitant]
  7. ISOSORBIDE MONONITRATE [Concomitant]
  8. PROTONIX [Concomitant]
  9. PROPOXYPHENE NAPAYLATE [Concomitant]
  10. TRIMETHOPRIM [Concomitant]
  11. NITROGLYCERIN [Concomitant]
  12. DEXAMETHASONE [Concomitant]
  13. ALPRAZOLAM [Concomitant]
  14. DIGOXIN [Suspect]
     Dosage: 0.125 MG;QD;PO
     Route: 048
     Dates: start: 20080404, end: 20080517
  15. XANAX [Concomitant]
  16. LEVAQUIN [Concomitant]
  17. OXYCONTIN [Concomitant]
  18. LIPITOR [Concomitant]
  19. MIRALAX [Concomitant]
  20. ALBUTEROL [Concomitant]
  21. TOPROL-XL [Concomitant]
  22. XOPENEX [Concomitant]
  23. ISISORBIDE [Concomitant]
  24. LEVOFLOXACIN [Concomitant]
  25. NORCO [Concomitant]
  26. TOPROL-XL [Concomitant]
  27. HYZAAR [Concomitant]
  28. ZOSYN [Concomitant]
  29. FAMOTIDINE [Concomitant]
  30. LOVENOX [Concomitant]
  31. ATIVAN [Concomitant]
  32. PLAVIX [Concomitant]
  33. HYOSCYAMINE [Concomitant]
  34. VANCOMYCIN [Concomitant]
  35. CELTRIAXONE [Concomitant]
  36. IPRATROPIUM BROMIDE [Concomitant]
  37. MIRALAX [Concomitant]
  38. CALCIUM [Concomitant]
  39. ALBUTEROL [Concomitant]
  40. PIPERACILLIN [Concomitant]
  41. ASPIRIN [Concomitant]
  42. EFFEXOR [Concomitant]
  43. ISOSORB [Concomitant]
  44. CEPHALEXIN [Concomitant]
  45. NITROSTAT [Concomitant]
  46. ASPIRININE [Concomitant]
  47. EFFEXOR [Concomitant]
  48. METOPROLOL TARTRATE [Concomitant]
  49. SODIUM CHLORIDE [Concomitant]
  50. DUONEB [Concomitant]
  51. IMDUR [Concomitant]
  52. PERCOCET [Concomitant]
  53. NITROGLYCERIN [Concomitant]
  54. DULCOLAX [Concomitant]
  55. PROAIR HFA [Concomitant]
  56. DECADRON [Concomitant]
  57. COZAAR [Concomitant]
  58. ALPRAZOLAM [Concomitant]
  59. HYDROCODONE BITARTRATE [Concomitant]
  60. DUONEB [Concomitant]
  61. MAGNESIUM OXIDE [Concomitant]
  62. SULCARAFATE [Concomitant]
  63. PERI-COLACE [Concomitant]
  64. CARAFATE [Concomitant]
  65. LASIX [Concomitant]
  66. VISICOL [Concomitant]
  67. DOPAMINE HCL [Concomitant]
  68. MORPHINE [Concomitant]
  69. HYDROCODONE BITARTRATE [Concomitant]
  70. DILTIAZEM HCL [Concomitant]
  71. SENNOSIDE [Concomitant]
  72. MORPHINE [Concomitant]
  73. PULMICORT [Concomitant]
  74. SOMA [Concomitant]
  75. VICODIN [Concomitant]
  76. NEUTRA PHOS [Concomitant]
  77. TOBRADEX [Concomitant]

REACTIONS (37)
  - BALANCE DISORDER [None]
  - PNEUMONIA [None]
  - PERIPHERAL VASCULAR DISORDER [None]
  - MEMORY IMPAIRMENT [None]
  - DECREASED APPETITE [None]
  - BUNDLE BRANCH BLOCK RIGHT [None]
  - ABDOMINAL PAIN [None]
  - TRANSITIONAL CELL CARCINOMA [None]
  - ACUTE CORONARY SYNDROME [None]
  - THROMBOCYTOPENIA [None]
  - HYPOPHOSPHATAEMIA [None]
  - DEHYDRATION [None]
  - HYPOTENSION [None]
  - DECUBITUS ULCER [None]
  - CONJUNCTIVITIS [None]
  - ABDOMINAL HERNIA [None]
  - SINUS TACHYCARDIA [None]
  - PAIN IN EXTREMITY [None]
  - ASTHENIA [None]
  - PAIN [None]
  - LEFT ATRIAL DILATATION [None]
  - NON-SMALL CELL LUNG CANCER [None]
  - SEPSIS [None]
  - HYPERPLASIA [None]
  - DELIRIUM [None]
  - BACK PAIN [None]
  - SCIATICA [None]
  - HEADACHE [None]
  - INCONTINENCE [None]
  - METASTASIS [None]
  - MALNUTRITION [None]
  - MYOCARDIAL INFARCTION [None]
  - STAPHYLOCOCCAL INFECTION [None]
  - DIARRHOEA [None]
  - HAEMOPTYSIS [None]
  - ANXIETY [None]
  - DIVERTICULUM [None]
